FAERS Safety Report 10899723 (Version 3)
Quarter: 2015Q2

REPORT INFORMATION
  Report Type: Spontaneous
  Country: JP (occurrence: JP)
  Receive Date: 20150309
  Receipt Date: 20150623
  Transmission Date: 20150821
  Serious: Yes (Hospitalization, Other)
  Sender: FDA-Public Use
  Company Number: JP-AMGEN-JPNSP2015021382

PATIENT
  Age: 79 Year
  Sex: Male
  Weight: 62.2 kg

DRUGS (15)
  1. 5-FU                               /00098801/ [Concomitant]
     Active Substance: FLUOROURACIL
     Dosage: 1500 MG, Q2WEEKS
     Route: 041
     Dates: start: 20150212, end: 20150212
  2. DECADRON [Concomitant]
     Active Substance: DEXAMETHASONE
     Indication: PROPHYLAXIS OF NAUSEA AND VOMITING
     Dosage: 9.9 MG, Q2WEEKS
     Route: 041
     Dates: start: 20150108, end: 20150122
  3. POLARAMINE [Concomitant]
     Active Substance: DEXCHLORPHENIRAMINE MALEATE
     Dosage: UNK
     Route: 065
  4. CAMPTO [Concomitant]
     Active Substance: IRINOTECAN
     Dosage: UNK, Q2WEEKS
     Route: 041
     Dates: start: 20150212, end: 20150212
  5. VECTIBIX [Suspect]
     Active Substance: PANITUMUMAB
     Indication: COLON CANCER
     Dosage: 370 MG, Q2WEEKS
     Route: 041
     Dates: start: 20150108, end: 20150122
  6. 5-FU                               /00098801/ [Concomitant]
     Active Substance: FLUOROURACIL
     Dosage: 300 MG, Q2WEEKS
     Route: 040
     Dates: start: 20150212, end: 20150212
  7. VECTIBIX [Suspect]
     Active Substance: PANITUMUMAB
     Dosage: 370 MG, Q2WEEKS
     Route: 041
     Dates: start: 20150212, end: 20150212
  8. CAMPTO [Concomitant]
     Active Substance: IRINOTECAN
     Indication: COLON CANCER
     Dosage: 120 MG, Q2WEEKS
     Route: 041
     Dates: start: 20150108, end: 20150122
  9. 5-FU                               /00098801/ [Concomitant]
     Active Substance: FLUOROURACIL
     Indication: COLON CANCER
     Dosage: 300 MG, Q2WEEKS
     Route: 040
     Dates: start: 20150108, end: 20150122
  10. CALCIUM LEVOFOLINATE [Concomitant]
     Active Substance: LEVOLEUCOVORIN CALCIUM
     Dosage: 160 MG, Q2WK
     Route: 041
     Dates: start: 20150212, end: 20150212
  11. CALCIUM LEVOFOLINATE [Concomitant]
     Active Substance: LEVOLEUCOVORIN CALCIUM
     Indication: COLON CANCER
     Dosage: 160 MG, Q2WEEKS
     Route: 041
     Dates: start: 20150108, end: 20150122
  12. ALOXI [Concomitant]
     Active Substance: PALONOSETRON HYDROCHLORIDE
     Indication: PROPHYLAXIS OF NAUSEA AND VOMITING
     Dosage: 0.75 MG, Q2WEEKS
     Route: 041
     Dates: start: 20150108, end: 20150122
  13. 5-FU                               /00098801/ [Concomitant]
     Active Substance: FLUOROURACIL
     Dosage: 1500 MG, Q2WEEKS
     Route: 041
     Dates: start: 20150108, end: 20150122
  14. DECADRON [Concomitant]
     Active Substance: DEXAMETHASONE
     Dosage: 9.9 MG, Q2WEEKS
     Route: 041
     Dates: start: 20150212, end: 20150212
  15. ALOXI [Concomitant]
     Active Substance: PALONOSETRON HYDROCHLORIDE
     Dosage: 0.75 MG, Q2WEEKS
     Route: 041
     Dates: start: 20150212, end: 20150212

REACTIONS (1)
  - Stevens-Johnson syndrome [Recovered/Resolved]

NARRATIVE: CASE EVENT DATE: 20150122
